FAERS Safety Report 9461760 (Version 1)
Quarter: 2020Q3

REPORT INFORMATION
  Report Type: Report from Study
  Country: US (occurrence: US)
  Receive Date: 20130816
  Receipt Date: 20130816
  Transmission Date: 20201104
  Serious: Yes (Hospitalization)
  Sender: FDA-Public Use
  Company Number: US-JNJFOC-20120107983

PATIENT
  Age: 25 Year
  Sex: Female
  Weight: 63.96 kg

DRUGS (20)
  1. CALTRATE?D [Concomitant]
     Indication: NUTRITIONAL SUPPLEMENTATION
     Route: 048
     Dates: start: 20110718
  2. ZOFRAN [Concomitant]
     Active Substance: ONDANSETRON HYDROCHLORIDE
     Indication: NAUSEA
     Route: 048
     Dates: start: 20110718
  3. PREDNISONE. [Concomitant]
     Active Substance: PREDNISONE
     Indication: CROHN^S DISEASE
     Route: 048
     Dates: start: 20120208
  4. FOLIC ACID. [Concomitant]
     Active Substance: FOLIC ACID
     Indication: MEDICAL DIET
     Route: 048
     Dates: start: 20120114
  5. HYDROCODONE [Concomitant]
     Active Substance: HYDROCODONE
     Indication: PAIN
     Route: 048
     Dates: start: 20111210, end: 20111217
  6. USTEKINUMAB [Suspect]
     Active Substance: USTEKINUMAB
     Indication: CROHN^S DISEASE
     Route: 042
     Dates: start: 20111019, end: 20111019
  7. SEASONIQUE [Concomitant]
     Active Substance: ETHINYL ESTRADIOL\LEVONORGESTREL
     Indication: CONTRACEPTION
     Route: 048
     Dates: start: 201104, end: 20111105
  8. BELLADONNA [Concomitant]
     Indication: CROHN^S DISEASE
     Route: 048
     Dates: start: 20110901, end: 20120113
  9. LOPERAMIDE [Concomitant]
     Active Substance: LOPERAMIDE
     Indication: DIARRHOEA
     Route: 048
     Dates: start: 20111113, end: 20111113
  10. PREDNISONE. [Concomitant]
     Active Substance: PREDNISONE
     Indication: CROHN^S DISEASE
     Route: 048
     Dates: start: 20110919, end: 20120109
  11. TYLENOL [Concomitant]
     Active Substance: ACETAMINOPHEN
     Indication: CROHN^S DISEASE
     Route: 048
     Dates: start: 20110623
  12. PRENATAL VITAMIN [Concomitant]
     Active Substance: VITAMINS
     Indication: MEDICAL DIET
     Route: 048
     Dates: start: 20120114
  13. OMEPRAZOLE. [Concomitant]
     Active Substance: OMEPRAZOLE
     Indication: GASTROOESOPHAGEAL REFLUX DISEASE
     Route: 048
     Dates: start: 20110718, end: 20111222
  14. LIBRAX [Concomitant]
     Active Substance: CHLORDIAZEPOXIDE HYDROCHLORIDE\CLIDINIUM BROMIDE
     Indication: ANXIETY
     Route: 048
     Dates: start: 20110718, end: 20120113
  15. CIPRO [Concomitant]
     Active Substance: CIPROFLOXACIN HYDROCHLORIDE
     Indication: URINARY TRACT INFECTION
     Route: 048
     Dates: start: 20111009, end: 20111018
  16. BENADRYL [Concomitant]
     Active Substance: DIPHENHYDRAMINE HYDROCHLORIDE
     Indication: INSOMNIA
     Route: 048
     Dates: start: 20111114, end: 20120113
  17. USTEKINUMAB [Suspect]
     Active Substance: USTEKINUMAB
     Route: 042
  18. TRAMADOL. [Concomitant]
     Active Substance: TRAMADOL
     Indication: PAIN
     Route: 048
     Dates: start: 20110901
  19. PREDNISONE. [Concomitant]
     Active Substance: PREDNISONE
     Indication: CROHN^S DISEASE
     Route: 048
     Dates: start: 20120110, end: 20120207
  20. HYOSCYAMINE. [Concomitant]
     Active Substance: HYOSCYAMINE
     Indication: ABDOMINAL PAIN
     Route: 060
     Dates: start: 20111120, end: 20120113

REACTIONS (2)
  - Exposure during pregnancy [Recovered/Resolved]
  - Pyelonephritis [Recovered/Resolved]

NARRATIVE: CASE EVENT DATE: 20120113
